FAERS Safety Report 5693641-5 (Version None)
Quarter: 2008Q2

REPORT INFORMATION
  Report Type: 
  Country: None (occurrence: None)
  Receive Date: 20080403
  Receipt Date: 20080325
  Transmission Date: 20081010
  Serious: Yes (Other)
  Sender: FDA-Public Use
  Company Number: FR-ROCHE-555175

PATIENT
  Age: 95 Year
  Sex: Female

DRUGS (5)
  1. BONIVA [Suspect]
     Indication: DRUG USE FOR UNKNOWN INDICATION
     Route: 048
     Dates: start: 20080222, end: 20080222
  2. OMEPRAZOLE [Concomitant]
  3. KARDEGIC [Concomitant]
  4. SEROPRAM [Concomitant]
  5. TAREG [Concomitant]

REACTIONS (2)
  - CHEILITIS [None]
  - STOMATITIS [None]
